FAERS Safety Report 7533387-1 (Version None)
Quarter: 2011Q2

REPORT INFORMATION
  Report Type: 
  Country: None (occurrence: None)
  Receive Date: 20110608
  Receipt Date: 20110527
  Transmission Date: 20111010
  Serious: Yes (Life-Threatening)
  Sender: FDA-Public Use
  Company Number: PL-UCBSA-034110

PATIENT
  Sex: Female
  Weight: 47 kg

DRUGS (1)
  1. XYZAL [Suspect]
     Indication: RHINITIS
     Route: 048
     Dates: start: 20101216, end: 20101217

REACTIONS (3)
  - CHEST DISCOMFORT [None]
  - BALANCE DISORDER [None]
  - AGITATION [None]
